FAERS Safety Report 14615824 (Version 3)
Quarter: 2019Q2

REPORT INFORMATION
  Report Type: Spontaneous
  Country: JP (occurrence: JP)
  Receive Date: 20180309
  Receipt Date: 20190521
  Transmission Date: 20190711
  Serious: Yes (Death)
  Sender: FDA-Public Use
  Company Number: JP-ACTELION-A-CH2018-168242

PATIENT
  Age: 83 Year
  Sex: Female

DRUGS (20)
  1. LIMAPROST [Concomitant]
     Active Substance: LIMAPROST
  2. CYMBALTA [Concomitant]
     Active Substance: DULOXETINE HYDROCHLORIDE
  3. FOLIAMIN [Concomitant]
     Active Substance: FOLIC ACID
  4. BIO-THREE [Concomitant]
     Active Substance: HERBALS
  5. ONEALFA [Concomitant]
     Active Substance: ALFACALCIDOL
  6. ANPLAG [Concomitant]
     Active Substance: SARPOGRELATE
  7. CALCIUM ASPARTATE [Concomitant]
     Active Substance: CALCIUM ASPARTATE
  8. PREDONINE [Concomitant]
     Active Substance: PREDNISOLONE
  9. TRAMCET [Concomitant]
     Active Substance: ACETAMINOPHEN\TRAMADOL
  10. OXYGEN. [Concomitant]
     Active Substance: OXYGEN
  11. OPSUMIT [Suspect]
     Active Substance: MACITENTAN
     Indication: PULMONARY ARTERIAL HYPERTENSION
     Dosage: 10 MG, QD
     Route: 048
     Dates: start: 20171112, end: 20180104
  12. AMLODIPINE [Concomitant]
     Active Substance: AMLODIPINE BESYLATE
  13. ETIZOLAM [Concomitant]
     Active Substance: ETIZOLAM
  14. FERROUS CITRATE NA [Concomitant]
     Active Substance: SODIUM FERROUS CITRATE
  15. AVAPRO [Concomitant]
     Active Substance: IRBESARTAN
  16. NEXIUM [Concomitant]
     Active Substance: ESOMEPRAZOLE MAGNESIUM
  17. CELECOX [Concomitant]
     Active Substance: CELECOXIB
  18. GASCON [Concomitant]
     Active Substance: DIMETHICONE
  19. METHYCOBAL [Concomitant]
     Active Substance: METHYLCOBALAMIN
  20. SAMSCA [Concomitant]
     Active Substance: TOLVAPTAN

REACTIONS (1)
  - Sepsis [Fatal]

NARRATIVE: CASE EVENT DATE: 20180101
